FAERS Safety Report 11047124 (Version 1)
Quarter: 2015Q2

REPORT INFORMATION
  Report Type: Spontaneous
  Country: US (occurrence: None)
  Receive Date: 20150417
  Receipt Date: 20150417
  Transmission Date: 20150821
  Serious: Yes (Hospitalization)
  Sender: FDA-Public Use
  Company Number: None

PATIENT
  Age: 69 Year
  Sex: Female

DRUGS (1)
  1. STIVARGA [Suspect]
     Active Substance: REGORAFENIB
     Indication: COLON CANCER
     Dosage: 160MG ?DAILY FOR 21 DAYS THEN OFF 7 ?PO
     Route: 048
     Dates: start: 20150207, end: 20150413

REACTIONS (2)
  - Pulmonary oedema [None]
  - Pulmonary pain [None]

NARRATIVE: CASE EVENT DATE: 20150413
